FAERS Safety Report 8022106-0 (Version None)
Quarter: 2012Q1

REPORT INFORMATION
  Report Type: 
  Country: None (occurrence: None)
  Receive Date: 20120104
  Receipt Date: 20120103
  Transmission Date: 20120608
  Serious: Yes (Hospitalization)
  Sender: FDA-Public Use
  Company Number: US-B.I. PHARMACEUTICALS,INC./RIDGEFIELD-2011-BP-06873BP

PATIENT
  Age: 87 Year
  Sex: Female

DRUGS (12)
  1. SIMVASTATIN [Concomitant]
     Indication: BLOOD CHOLESTEROL
  2. PRADAXA [Suspect]
     Indication: ATRIAL FIBRILLATION
     Dosage: 300 MG
     Route: 048
     Dates: start: 20110224
  3. PRADAXA [Suspect]
     Indication: DRUG THERAPY CHANGED
  4. FUROSEMIDE [Concomitant]
     Indication: DIURETIC THERAPY
  5. XALATAN [Concomitant]
  6. LEVOTHYROXINE SODIUM [Concomitant]
     Indication: THYROID DISORDER
  7. OMEPRAZOLE [Concomitant]
     Indication: DYSPEPSIA
  8. RANITIDINE [Concomitant]
  9. PRADAXA [Suspect]
     Indication: ANTICOAGULANT THERAPY
  10. ATENOLOL [Concomitant]
  11. POTASSIUM CL [Concomitant]
  12. CELEBREX [Concomitant]

REACTIONS (3)
  - DRUG INEFFECTIVE [None]
  - HAEMORRHAGE [None]
  - SENSATION OF FOREIGN BODY [None]
